FAERS Safety Report 8503321-6 (Version None)
Quarter: 2012Q2

REPORT INFORMATION
  Report Type: 
  Country: None (occurrence: None)
  Receive Date: 20120405
  Receipt Date: 20100713
  Transmission Date: 20120825
  Serious: Yes (Other)
  Sender: FDA-Public Use
  Company Number: PHEH2010US02250

PATIENT
  Age: 62 Year
  Sex: Female
  Weight: 72.6 kg

DRUGS (1)
  1. RECLAST [Suspect]
     Dosage: 1 PER YEAR, INTRAVENOUS
     Route: 042

REACTIONS (4)
  - DIARRHOEA [None]
  - ENDODONTIC PROCEDURE [None]
  - OSTEONECROSIS OF JAW [None]
  - PAIN IN JAW [None]
